FAERS Safety Report 9357713 (Version 1)
Quarter: 2013Q2

REPORT INFORMATION
  Report Type: Spontaneous
  Country: US (occurrence: None)
  Receive Date: 20130619
  Receipt Date: 20130619
  Transmission Date: 20140414
  Serious: Yes (Death)
  Sender: FDA-Public Use
  Company Number: None

PATIENT
  Sex: Male

DRUGS (1)
  1. TARCEVA 100MG GENENTECH [Suspect]
     Indication: LUNG NEOPLASM MALIGNANT
     Dosage: 1 TABLET DAILY ORAL
     Dates: start: 20130513, end: 20130618

REACTIONS (1)
  - Death [None]
